FAERS Safety Report 18096493 (Version 1)
Quarter: 2020Q3

REPORT INFORMATION
  Report Type: Spontaneous
  Country: US (occurrence: US)
  Receive Date: 20200731
  Receipt Date: 20200731
  Transmission Date: 20201103
  Serious: No
  Sender: FDA-Public Use
  Company Number: US-SA-2020SA197252

PATIENT

DRUGS (1)
  1. DOCETAXEL. [Suspect]
     Active Substance: DOCETAXEL
     Route: 065

REACTIONS (4)
  - Chest pain [Unknown]
  - Hypersensitivity [Unknown]
  - Headache [Unknown]
  - Back pain [Unknown]
